FAERS Safety Report 17679634 (Version 1)
Quarter: 2020Q2

REPORT INFORMATION
  Report Type: Spontaneous
  Country: IT (occurrence: IT)
  Receive Date: 20200417
  Receipt Date: 20200417
  Transmission Date: 20200714
  Serious: Yes (Disabling)
  Sender: FDA-Public Use
  Company Number: IT-BAYER-2020-061939

PATIENT
  Age: 54 Year
  Sex: Female

DRUGS (1)
  1. CIPROXIN [Suspect]
     Active Substance: CIPROFLOXACIN
     Indication: CYSTITIS
     Dosage: UNK

REACTIONS (6)
  - Neurogenic bladder [Unknown]
  - Tinnitus [Unknown]
  - Vision blurred [Unknown]
  - Dizziness [Unknown]
  - Migraine with aura [Unknown]
  - Neurogenic bowel [Unknown]
